FAERS Safety Report 19446503 (Version 1)
Quarter: 2021Q2

REPORT INFORMATION
  Report Type: Spontaneous
  Country: GB (occurrence: GB)
  Receive Date: 20210622
  Receipt Date: 20210622
  Transmission Date: 20210717
  Serious: Yes (Hospitalization, Other)
  Sender: FDA-Public Use
  Company Number: GB-AUROBINDO-AUR-APL-2021-026037

PATIENT
  Age: 53 Year
  Sex: Male
  Weight: 125.1 kg

DRUGS (24)
  1. FUROSEMIDE. [Suspect]
     Active Substance: FUROSEMIDE
     Indication: CORONARY ARTERY DISEASE
     Dosage: 20 MILLIGRAM, ONCE A DAY
     Route: 048
     Dates: start: 20201125, end: 20210308
  2. GEMCITABINE. [Suspect]
     Active Substance: GEMCITABINE
     Indication: UNDIFFERENTIATED SARCOMA
     Dosage: DOSE: 1710 MILLIGRAM, FREQUENCY:D1
     Route: 042
     Dates: start: 20210304, end: 20210304
  3. OXYCONTIN [Suspect]
     Active Substance: OXYCODONE HYDROCHLORIDE
     Indication: PAIN
     Dosage: 40 MILLIGRAM, ONCE A DAY (TOTAL)
     Route: 065
     Dates: start: 20210224
  4. OXYCONTIN [Suspect]
     Active Substance: OXYCODONE HYDROCHLORIDE
     Dosage: 30 MILLIGRAM, ONCE A DAY
     Route: 048
     Dates: start: 20210224
  5. GEMCITABINE. [Suspect]
     Active Substance: GEMCITABINE
     Indication: LEIOMYOSARCOMA
     Dosage: 2128 MILLIGRAM, FREQUENCY: D1 AND D8
     Route: 042
     Dates: start: 20201117, end: 20201210
  6. PEMBROLIZUMAB. [Suspect]
     Active Substance: PEMBROLIZUMAB
     Indication: PLEOMORPHIC LEIOMYOSARCOMA
     Dosage: 200 MILLIGRAM, FREQUENCY: D1
     Route: 042
     Dates: start: 20201210
  7. PEMBROLIZUMAB. [Suspect]
     Active Substance: PEMBROLIZUMAB
     Indication: LEIOMYOSARCOMA
     Dosage: 200 MILLIGRAM, FREQUENCY: D1
     Route: 042
     Dates: start: 20210304
  8. PETROLATUM. [Concomitant]
     Active Substance: PETROLATUM
     Indication: RASH
     Dosage: DOSE: T TOPICAL, TID
     Route: 061
     Dates: start: 20201123, end: 2021
  9. BISOPROLOL [Suspect]
     Active Substance: BISOPROLOL
     Indication: CORONARY ARTERY DISEASE
     Dosage: 7.5 MILLIGRAM, ONCE A DAY
     Route: 048
     Dates: start: 2017, end: 20210308
  10. LANSOPRAZOLE. [Concomitant]
     Active Substance: LANSOPRAZOLE
     Indication: GASTROOESOPHAGEAL REFLUX DISEASE
     Dosage: 30 MILLIGRAM, ONCE A DAY
     Route: 048
     Dates: start: 2017, end: 20210308
  11. SENOKOT [Concomitant]
     Active Substance: SENNOSIDES
     Indication: CONSTIPATION
     Dosage: 7.5 MILLIGRAM, ONCE A DAY ALSO REPORTED AS 2 TABLETS), QD
     Route: 048
     Dates: start: 20200223, end: 20210308
  12. ACETAMINOPHEN. [Concomitant]
     Active Substance: ACETAMINOPHEN
     Indication: PELVIC PAIN
     Dosage: 1 GRAM, ONCE A DAY
     Route: 048
     Dates: start: 2008, end: 2021
  13. METOCLOPRAMIDE. [Suspect]
     Active Substance: METOCLOPRAMIDE
     Indication: NAUSEA
     Dosage: 10 MILLIGRAM, ONCE A DAY (10 MG, PRN)
     Route: 048
     Dates: start: 20201206
  14. ASPIRIN. [Concomitant]
     Active Substance: ASPIRIN
     Indication: PROPHYLAXIS
     Dosage: 75 MILLIGRAM, ONCE A DAY
     Route: 048
     Dates: start: 2017, end: 20210308
  15. DOCUSATE SODIUM. [Concomitant]
     Active Substance: DOCUSATE SODIUM
     Indication: CONSTIPATION
     Dosage: 200 MILLIGRAM, TWO TIMES A DAY
     Route: 048
     Dates: start: 2008, end: 2021
  16. GABAPENTIN. [Concomitant]
     Active Substance: GABAPENTIN
     Indication: NEURALGIA
     Dosage: UNK
     Route: 048
     Dates: start: 20201125, end: 20201127
  17. LAXIDO [Concomitant]
     Active Substance: POLYETHYLENE GLYCOL 3350\POTASSIUM CHLORIDE\SODIUM BICARBONATE\SODIUM CHLORIDE
     Indication: CONSTIPATION
     Dosage: 1 DOSAGE FORM, TWO TIMES A DAY (1 SACHET, BID/PRN)
     Route: 048
     Dates: start: 2008, end: 2021
  18. OXYCODONE [Suspect]
     Active Substance: OXYCODONE
     Indication: PELVIC PAIN
     Dosage: 5 MILLIGRAM, ONCE A DAY (5 MG, PRN)
     Route: 048
     Dates: start: 20201105
  19. ATORVASTATIN [Concomitant]
     Active Substance: ATORVASTATIN
     Indication: CORONARY ARTERY DISEASE
     Dosage: 80 MILLIGRAM, ONCE A DAY (TOTAL)
     Route: 048
     Dates: start: 2017, end: 20210308
  20. MINERAL OIL. [Concomitant]
     Active Substance: MINERAL OIL
     Indication: RASH
     Dosage: DOSE: T TOPICAL, TID
     Route: 061
     Dates: start: 20201123, end: 2021
  21. LIDOCAINE. [Concomitant]
     Active Substance: LIDOCAINE
     Indication: PAIN
     Dosage: TOPICAL, TID
     Route: 061
     Dates: start: 20201109, end: 2021
  22. LOSARTAN POTASSIUM. [Suspect]
     Active Substance: LOSARTAN POTASSIUM
     Indication: HYPERTENSION
     Dosage: 50 MILLIGRAM, ONCE A DAY
     Route: 048
     Dates: start: 20201206, end: 20210308
  23. CLOTRIMAZOLE. [Concomitant]
     Active Substance: CLOTRIMAZOLE
     Indication: INTERTRIGO
     Dosage: DOSE: T, BID
     Route: 061
     Dates: start: 20201123, end: 20201127
  24. LANOLIN. [Concomitant]
     Active Substance: LANOLIN
     Indication: RASH
     Dosage: DOSE: T TOPICAL, TID
     Route: 061
     Dates: start: 20201123, end: 2021

REACTIONS (8)
  - Fall [Recovered/Resolved]
  - Dizziness [Unknown]
  - Accident [Unknown]
  - Skin infection [Recovered/Resolved]
  - Urinary retention [Unknown]
  - Cellulitis [Recovered/Resolved]
  - Cardiac failure [Recovered/Resolved]
  - Dyspnoea [Not Recovered/Not Resolved]

NARRATIVE: CASE EVENT DATE: 20201221
